FAERS Safety Report 12675743 (Version 5)
Quarter: 2024Q1

REPORT INFORMATION
  Report Type: Report from Study
  Country: US (occurrence: US)
  Receive Date: 20160823
  Receipt Date: 20240321
  Transmission Date: 20240409
  Serious: Yes (Other)
  Sender: FDA-Public Use
  Company Number: US-JAZZ-2016-US-006670

PATIENT
  Age: 39 Year
  Sex: Female
  Weight: 86.621 kg

DRUGS (14)
  1. XYREM [Suspect]
     Active Substance: SODIUM OXYBATE
     Indication: Narcolepsy
     Dosage: 2.25G, BID
     Dates: start: 201603, end: 201604
  2. XYREM [Suspect]
     Active Substance: SODIUM OXYBATE
     Dosage: 3G, BID
     Dates: start: 201603, end: 201604
  3. XYREM [Suspect]
     Active Substance: SODIUM OXYBATE
     Dosage: 3.75G, BID
     Dates: start: 201603, end: 201604
  4. XYREM [Suspect]
     Active Substance: SODIUM OXYBATE
     Dosage: 2.25G, BID
     Dates: start: 201603, end: 201604
  5. XYREM [Suspect]
     Active Substance: SODIUM OXYBATE
     Dosage: 2.25G, BID
     Dates: start: 201603, end: 201604
  6. LORATADINE [Concomitant]
     Active Substance: LORATADINE
     Indication: Hypersensitivity
  7. ALPRAZOLAM [Concomitant]
     Active Substance: ALPRAZOLAM
     Indication: Product used for unknown indication
  8. ALEVE [Concomitant]
     Active Substance: NAPROXEN SODIUM
     Indication: Product used for unknown indication
  9. OMEPRAZOLE [Concomitant]
     Active Substance: OMEPRAZOLE
     Indication: Product used for unknown indication
  10. ZOFRAN [Concomitant]
     Active Substance: ONDANSETRON HYDROCHLORIDE
     Indication: Product used for unknown indication
  11. BACLOFEN [Concomitant]
     Active Substance: BACLOFEN
     Indication: Muscle spasms
  12. TRAMADOL [Concomitant]
     Active Substance: TRAMADOL\TRAMADOL HYDROCHLORIDE
     Indication: Bone pain
  13. CALCIUM\VITAMIN D [Concomitant]
     Active Substance: CALCIUM\VITAMIN D
     Dosage: UNK
     Dates: start: 20170701
  14. PREDNISONE [Concomitant]
     Active Substance: PREDNISONE
     Indication: Product used for unknown indication
     Dosage: UNK
     Dates: start: 20170902

REACTIONS (6)
  - Rheumatoid arthritis [Not Recovered/Not Resolved]
  - Joint instability [Unknown]
  - Arthropathy [Unknown]
  - Hunger [Unknown]
  - Hyperphagia [Not Recovered/Not Resolved]
  - Bone pain [Recovering/Resolving]

NARRATIVE: CASE EVENT DATE: 20160301
